FAERS Safety Report 13913595 (Version 1)
Quarter: 2017Q3

REPORT INFORMATION
  Report Type: Spontaneous
  Country: US (occurrence: US)
  Receive Date: 20170828
  Receipt Date: 20170828
  Transmission Date: 20171127
  Serious: No
  Sender: FDA-Public Use
  Company Number: US-ROCHE-1136453

PATIENT
  Sex: Male
  Weight: 55.9 kg

DRUGS (2)
  1. NUTROPIN [Suspect]
     Active Substance: SOMATROPIN
     Indication: GROWTH HORMONE DEFICIENCY
     Dosage: 0.32 CC
     Route: 065
     Dates: start: 199905
  2. NUTROPIN [Suspect]
     Active Substance: SOMATROPIN
     Dosage: 0.68 CC
     Route: 065

REACTIONS (4)
  - Drug dose omission [Unknown]
  - Headache [Recovered/Resolved]
  - Genital rash [Unknown]
  - Gynaecomastia [Unknown]
